FAERS Safety Report 15798552 (Version 1)
Quarter: 2019Q1

REPORT INFORMATION
  Report Type: Spontaneous
  Country: BR (occurrence: BR)
  Receive Date: 20190108
  Receipt Date: 20190108
  Transmission Date: 20190417
  Serious: Yes (Other)
  Sender: FDA-Public Use
  Company Number: BR-SA-2018SA317750

PATIENT
  Age: 29 Year
  Sex: Male
  Weight: 68 kg

DRUGS (4)
  1. STILNOX [Suspect]
     Active Substance: ZOLPIDEM TARTRATE
     Indication: SLEEP DISORDER
     Dosage: UNK
  2. LEXAPRO [Concomitant]
     Active Substance: ESCITALOPRAM OXALATE
  3. STILNOX [Suspect]
     Active Substance: ZOLPIDEM TARTRATE
     Dosage: 8 DF, UNK
     Route: 048
     Dates: start: 20181114, end: 201811
  4. PREBICTAL [Concomitant]
     Active Substance: PREGABALIN

REACTIONS (7)
  - Somnolence [Recovered/Resolved]
  - Loss of consciousness [Recovered/Resolved]
  - Respiratory disorder [Recovered/Resolved]
  - Overdose [Unknown]
  - Loss of consciousness [Recovered/Resolved]
  - Drug abuse [Unknown]
  - Feeling of relaxation [Recovered/Resolved]

NARRATIVE: CASE EVENT DATE: 20181114
